FAERS Safety Report 5624814-5 (Version None)
Quarter: 2008Q1

REPORT INFORMATION
  Report Type: 
  Country: None (occurrence: None)
  Receive Date: 20080213
  Receipt Date: 20080118
  Transmission Date: 20080703
  Serious: Yes (Life-Threatening)
  Sender: FDA-Public Use
  Company Number: JP-ROCHE-538177

PATIENT
  Age: 64 Year
  Sex: Female

DRUGS (6)
  1. CELLCEPT [Suspect]
     Route: 048
     Dates: start: 20050607, end: 20050610
  2. PREDONINE [Suspect]
     Dosage: 5-30MG
     Route: 048
     Dates: start: 20050606, end: 20050922
  3. PROGRAF [Suspect]
     Dosage: 0.4-9MG
     Route: 048
     Dates: start: 20050530
  4. SOLU-MEDROL [Suspect]
     Dosage: 125-500MG
     Route: 042
     Dates: start: 20050530, end: 20050606
  5. PEG-INTRON [Concomitant]
  6. REBETOL [Concomitant]

REACTIONS (3)
  - BREAST CANCER [None]
  - HEPATITIS C [None]
  - LUNG NEOPLASM MALIGNANT [None]
